FAERS Safety Report 5907576-3 (Version None)
Quarter: 2008Q4

REPORT INFORMATION
  Report Type: 
  Country: None (occurrence: None)
  Receive Date: 20081002
  Receipt Date: 20081002
  Transmission Date: 20090506
  Serious: Yes (Other)
  Sender: FDA-Public Use
  Company Number: None

PATIENT
  Age: 50 Year
  Sex: Female
  Weight: 79.3795 kg

DRUGS (2)
  1. ALBUTEROL [Suspect]
     Indication: CHRONIC OBSTRUCTIVE PULMONARY DISEASE
     Dosage: 2 PUFFS EVERY FOUR HOURS INHAL
     Route: 055
     Dates: start: 20080925, end: 20081001
  2. ALBUTEROL [Suspect]
     Indication: RESPIRATORY TRACT INFECTION VIRAL
     Dosage: 2 PUFFS EVERY FOUR HOURS INHAL
     Route: 055
     Dates: start: 20080925, end: 20081001

REACTIONS (1)
  - DRUG INEFFECTIVE [None]
